FAERS Safety Report 12523257 (Version 1)
Quarter: 2016Q3

REPORT INFORMATION
  Report Type: Spontaneous
  Country: US (occurrence: US)
  Receive Date: 20160702
  Receipt Date: 20160702
  Transmission Date: 20161109
  Serious: Yes (Other)
  Sender: FDA-Public Use
  Company Number: US-ACCORD-042025

PATIENT
  Age: 35 Year
  Sex: Male

DRUGS (2)
  1. METHOTREXATE. [Suspect]
     Active Substance: METHOTREXATE
     Indication: AUTOIMMUNE NEUTROPENIA
  2. GRANULOCYTE COLONY STIMULATING [Suspect]
     Active Substance: GRANULOCYTE COLONY-STIMULATING FACTOR NOS
     Indication: AUTOIMMUNE NEUTROPENIA

REACTIONS (2)
  - Off label use [Unknown]
  - Splenomegaly [Unknown]
